FAERS Safety Report 8575492 (Version 6)
Quarter: 2012Q4

REPORT INFORMATION
  Report Type: 
  Country: JP (occurrence: JP)
  Receive Date: 20120523
  Receipt Date: 20120904
  Transmission Date: 20130627
  Serious: Yes (Hospitalization)
  Sender: FDA-Public Use
  Company Number: JP-JNJFOC-20120515712

PATIENT
  Age: 81 Year
  Sex: Female
  Weight: 48 kg

DRUGS (8)
  1. REMINYL [Suspect]
     Indication: DEMENTIA ALZHEIMER^S TYPE
     Route: 048
     Dates: start: 20120327, end: 20120514
  2. REMINYL [Suspect]
     Indication: DEMENTIA ALZHEIMER^S TYPE
     Route: 048
     Dates: start: 20120228, end: 20120326
  3. PERSANTIN [Concomitant]
     Indication: ANGINA PECTORIS
     Route: 048
     Dates: end: 20120514
  4. MEVALOTIN [Concomitant]
     Indication: HYPERLIPIDAEMIA
     Route: 048
     Dates: end: 20120514
  5. PERDIPINE [Concomitant]
     Indication: HYPERTENSION
     Route: 048
     Dates: end: 20120514
  6. LANSOPRAZOLE [Concomitant]
     Indication: GASTROOESOPHAGEAL REFLUX DISEASE
     Route: 048
     Dates: start: 20120424, end: 20120514
  7. LOXONIN [Concomitant]
     Route: 062
  8. ROCEPHIN [Concomitant]
     Indication: URINARY TRACT INFECTION
     Route: 041
     Dates: start: 20120515, end: 20120517

REACTIONS (6)
  - Loss of consciousness [Recovered/Resolved]
  - Sick sinus syndrome [Recovered/Resolved]
  - Gastroenteritis viral [Recovered/Resolved]
  - Electrolyte imbalance [Recovered/Resolved]
  - Urinary tract infection [Recovered/Resolved]
  - Inappropriate schedule of drug administration [Unknown]
